FAERS Safety Report 17890536 (Version 5)
Quarter: 2021Q2

REPORT INFORMATION
  Report Type: Spontaneous
  Country: US (occurrence: US)
  Receive Date: 20200612
  Receipt Date: 20210629
  Transmission Date: 20210717
  Serious: No
  Sender: FDA-Public Use
  Company Number: US-TEVA-2020-US-1245740

PATIENT
  Sex: Male

DRUGS (11)
  1. ICLUSIG [Concomitant]
     Active Substance: PONATINIB
  2. SYNRIBO [Suspect]
     Active Substance: OMACETAXINE MEPESUCCINATE
     Indication: CHRONIC MYELOID LEUKAEMIA
     Dosage: 2.1MG/0.6ML, BID X 14 DAYS OF 28 DAYS CYCLE
     Route: 058
     Dates: start: 20200529
  3. VERAPAMIL HYDROCHLORIDE. [Concomitant]
     Active Substance: VERAPAMIL HYDROCHLORIDE
  4. PREDNISOLONE. [Concomitant]
     Active Substance: PREDNISOLONE
     Route: 065
  5. HYDROCHLOROTHIAZIDE. [Concomitant]
     Active Substance: HYDROCHLOROTHIAZIDE
     Route: 065
  6. PREDNISOLONE ACETATE. [Concomitant]
     Active Substance: PREDNISOLONE ACETATE
  7. CIPROFLOXACIN. [Concomitant]
     Active Substance: CIPROFLOXACIN
  8. PANTOPRAZOLE SODIUM. [Concomitant]
     Active Substance: PANTOPRAZOLE SODIUM
  9. POSACONAZOLE [Concomitant]
     Active Substance: POSACONAZOLE
  10. METOPROLOL SUCCINATE ER [Concomitant]
     Active Substance: METOPROLOL SUCCINATE
  11. XIIDRA [Concomitant]
     Active Substance: LIFITEGRAST

REACTIONS (6)
  - Injection site erythema [Unknown]
  - Rash [Recovering/Resolving]
  - Injection site irritation [Unknown]
  - Eye swelling [Unknown]
  - Rash [Recovered/Resolved]
  - Eyelid margin crusting [Unknown]
